FAERS Safety Report 20562291 (Version 1)
Quarter: 2022Q1

REPORT INFORMATION
  Report Type: Report from Study
  Country: DE (occurrence: DE)
  Receive Date: 20220307
  Receipt Date: 20220307
  Transmission Date: 20220423
  Serious: Yes (Other)
  Sender: FDA-Public Use
  Company Number: DE-ABBVIE-22K-062-4303356-00

PATIENT
  Age: 53 Year
  Sex: Male

DRUGS (7)
  1. SKYRIZI [Suspect]
     Active Substance: RISANKIZUMAB-RZAA
     Indication: Psoriasis
     Route: 058
     Dates: start: 20190806, end: 20190903
  2. SKYRIZI [Suspect]
     Active Substance: RISANKIZUMAB-RZAA
     Route: 058
     Dates: start: 20190903
  3. CETIRIZINE [Concomitant]
     Active Substance: CETIRIZINE HYDROCHLORIDE
     Indication: Urticaria
     Route: 048
     Dates: start: 20210115, end: 20210128
  4. HYDROCORTISONE BUTYRATE [Concomitant]
     Active Substance: HYDROCORTISONE BUTYRATE
     Indication: Urticaria
     Dosage: EMULSION
     Route: 061
     Dates: start: 20210115, end: 20210128
  5. BOOSTRIX POLIO [Concomitant]
     Active Substance: DIPHTHERIA AND TETANUS TOXOIDS AND ACELLULAR PERTUSSIS ADSORBED AND INACTIVATED POLIOVIRUS VACCINE
     Indication: Immunisation
     Route: 030
     Dates: start: 20210504, end: 20210504
  6. SHINGRIX [Concomitant]
     Active Substance: RECOMBINANT VARICELLA ZOSTER VIRUS (VZV) GLYCOPROTEIN E
     Indication: Immunisation
     Dosage: FIRST OF TWO VACCINATION DOSES
     Route: 030
     Dates: start: 20210518, end: 20210518
  7. SHINGRIX [Concomitant]
     Active Substance: RECOMBINANT VARICELLA ZOSTER VIRUS (VZV) GLYCOPROTEIN E
     Dosage: SECOND OF TWO VACCINATION DOSES
     Route: 030
     Dates: start: 20210810, end: 20210810

REACTIONS (3)
  - Comminuted fracture [Recovered/Resolved]
  - Lipid metabolism disorder [Recovered/Resolved]
  - Lipid metabolism disorder [Not Recovered/Not Resolved]

NARRATIVE: CASE EVENT DATE: 20211007
